FAERS Safety Report 13883748 (Version 1)
Quarter: 2017Q3

REPORT INFORMATION
  Report Type: Spontaneous
  Country: US (occurrence: US)
  Receive Date: 20170819
  Receipt Date: 20170819
  Transmission Date: 20171127
  Serious: No
  Sender: FDA-Public Use
  Company Number: US-009507513-1708USA007796

PATIENT
  Sex: Female

DRUGS (1)
  1. BELSOMRA [Suspect]
     Active Substance: SUVOREXANT
     Indication: INSOMNIA
     Dosage: 10 MG, QD (ONE PER DAY)
     Route: 048
     Dates: start: 20170809, end: 201708

REACTIONS (2)
  - Night sweats [Unknown]
  - Headache [Unknown]

NARRATIVE: CASE EVENT DATE: 201708
